FAERS Safety Report 19956986 (Version 1)
Quarter: 2021Q4

REPORT INFORMATION
  Report Type: Spontaneous
  Country: CN (occurrence: CN)
  Receive Date: 20211014
  Receipt Date: 20211014
  Transmission Date: 20220303
  Serious: Yes (Other)
  Sender: FDA-Public Use
  Company Number: CN-BAXTER-2021BAX028533

PATIENT
  Age: 53 Year
  Sex: Female
  Weight: 57 kg

DRUGS (10)
  1. CYCLOPHOSPHAMIDE [Suspect]
     Active Substance: CYCLOPHOSPHAMIDE
     Indication: Breast cancer female
     Dosage: INTRA-PUMP INJECTION; FIRST CYCLE OF CHEMOTHERAPY.
     Route: 050
     Dates: start: 20190403
  2. CYCLOPHOSPHAMIDE [Suspect]
     Active Substance: CYCLOPHOSPHAMIDE
     Dosage: INTRA-PUMP INJECTION; SECOND CYCLE OF CHEMOTHERAPY; CYCLOPHOSPHAMIDE 1G + NORMAL SALINE 40ML
     Route: 050
     Dates: start: 20190425, end: 20190425
  3. CYCLOPHOSPHAMIDE [Suspect]
     Active Substance: CYCLOPHOSPHAMIDE
     Dosage: INTRA-PUMP INJECTION; DOSE RE-INTRODUCED;
     Route: 050
  4. SODIUM CHLORIDE [Suspect]
     Active Substance: SODIUM CHLORIDE
     Indication: Medication dilution
     Dosage: DILUENT FOR CYCLOPHOSPHAMIDE
     Route: 041
     Dates: start: 20190425, end: 20190425
  5. DEXTROSE [Suspect]
     Active Substance: DEXTROSE
     Indication: Medication dilution
     Dosage: DILUENT FOR EPIRUBICIN 140 MG
     Route: 041
     Dates: start: 20190425, end: 20190425
  6. EPIRUBICIN [Suspect]
     Active Substance: EPIRUBICIN
     Indication: Breast cancer female
     Dosage: FIRST CYCLE OF CHEMOTHERAPY;
     Route: 041
     Dates: start: 20190403
  7. EPIRUBICIN [Suspect]
     Active Substance: EPIRUBICIN
     Dosage: SECOND CYCLE OF CHEMOTHERAPY; EPIRUBICIN 140 MG + 5% GLUCOSE INJECTION 250ML
     Route: 041
     Dates: start: 20190425, end: 20190425
  8. EPIRUBICIN [Suspect]
     Active Substance: EPIRUBICIN
     Dosage: DOSE RE-INTRODUCED
     Route: 041
  9. DEXAMETHASONE [Concomitant]
     Active Substance: DEXAMETHASONE
     Indication: Antiallergic therapy
     Route: 065
  10. ONDANSETRON [Concomitant]
     Active Substance: ONDANSETRON
     Indication: Antiemetic supportive care
     Route: 065

REACTIONS (7)
  - Nausea [Recovering/Resolving]
  - Dizziness [Recovering/Resolving]
  - Nausea [Recovered/Resolved]
  - Dizziness [Recovered/Resolved]
  - Vomiting [Recovered/Resolved]
  - Decreased appetite [Recovered/Resolved]
  - Fatigue [Recovered/Resolved]

NARRATIVE: CASE EVENT DATE: 20190426
